FAERS Safety Report 13407227 (Version 2)
Quarter: 2018Q1

REPORT INFORMATION
  Report Type: Report from Study
  Country: US (occurrence: US)
  Receive Date: 20170405
  Receipt Date: 20180302
  Transmission Date: 20180508
  Serious: Yes (Death, Hospitalization)
  Sender: FDA-Public Use
  Company Number: US-ACTELION-A-US2016-143734

PATIENT
  Age: 66 Year
  Sex: Female
  Weight: 61.22 kg

DRUGS (9)
  1. OPSUMIT [Suspect]
     Active Substance: MACITENTAN
     Dosage: 10 MG, UNK
     Route: 048
     Dates: start: 20160123
  2. LEXAPRO [Concomitant]
     Active Substance: ESCITALOPRAM OXALATE
     Dosage: 10 MG, QD
  3. OPSUMIT [Suspect]
     Active Substance: MACITENTAN
     Indication: PULMONARY HYPERTENSION
     Dosage: 10 MG, QD
     Route: 048
     Dates: start: 20160411, end: 20170328
  4. AMLODIPINE [Concomitant]
     Active Substance: AMLODIPINE BESYLATE
  5. CARVEDILOL. [Concomitant]
     Active Substance: CARVEDILOL
     Dosage: 6.25 MG, QD
  6. BUMETANIDE. [Concomitant]
     Active Substance: BUMETANIDE
     Dosage: 2 MG, QD
  7. ALBUTEROL. [Concomitant]
     Active Substance: ALBUTEROL
     Dosage: 2.5ML/3ML, QID
     Route: 055
  8. SILDENAFIL CITRATE. [Concomitant]
     Active Substance: SILDENAFIL CITRATE
  9. LEVAQUIN [Concomitant]
     Active Substance: LEVOFLOXACIN
     Dosage: 500 MG, QD
     Dates: start: 20170315

REACTIONS (16)
  - Acute respiratory failure [Fatal]
  - Acute kidney injury [Unknown]
  - Atrial fibrillation [Unknown]
  - Anxiety [Unknown]
  - Headache [Unknown]
  - Dehydration [Unknown]
  - Visual impairment [Unknown]
  - Vomiting [Unknown]
  - Oxygen saturation decreased [Unknown]
  - Dizziness [Unknown]
  - Pulmonary oedema [Unknown]
  - Palpitations [Unknown]
  - Restless legs syndrome [Unknown]
  - Sleep disorder [Unknown]
  - Pneumonia [Fatal]
  - Nausea [Unknown]

NARRATIVE: CASE EVENT DATE: 201702
